FAERS Safety Report 4629334-2 (Version None)
Quarter: 2005Q2

REPORT INFORMATION
  Report Type: 
  Country: None (occurrence: None)
  Receive Date: 20050405
  Receipt Date: 20050328
  Transmission Date: 20051028
  Serious: Yes (Hospitalization, Other)
  Sender: FDA-Public Use
  Company Number: CHPA2005US00982

PATIENT
  Age: 45 Year
  Sex: Female

DRUGS (4)
  1. TRANSDERM-SCOP (NCH)(HYOSCINE HYDROBROM) TRANS-THERAPEUTIC SYSTEM [Suspect]
     Indication: VERTIGO
     Dosage: 1 DF, ONCE/SINGLE, TRANSDERMAL
     Route: 062
     Dates: start: 20041001, end: 20041001
  2. EFFEXOR [Suspect]
  3. VICODIN [Concomitant]
  4. TEGRETOL [Concomitant]

REACTIONS (13)
  - BRAIN DAMAGE [None]
  - DRUG INTERACTION [None]
  - DRUG TOXICITY [None]
  - FEELING ABNORMAL [None]
  - HEADACHE [None]
  - MEDICATION ERROR [None]
  - MENTAL DISORDER [None]
  - METABOLIC DISORDER [None]
  - NERVOUS SYSTEM DISORDER [None]
  - NEURALGIA [None]
  - NEUROTOXICITY [None]
  - TRISMUS [None]
  - VISION BLURRED [None]
